FAERS Safety Report 7415503-5 (Version None)
Quarter: 2011Q2

REPORT INFORMATION
  Report Type: 
  Country: None (occurrence: None)
  Receive Date: 20110414
  Receipt Date: 20110404
  Transmission Date: 20111010
  Serious: Yes (Other)
  Sender: FDA-Public Use
  Company Number: US-MILLENNIUM PHARMACEUTICALS, INC.-2011-00515

PATIENT

DRUGS (16)
  1. VALACICLOVIR [Concomitant]
  2. VELCADE [Suspect]
     Indication: MULTIPLE MYELOMA
     Dosage: 1.3 MG/M2, CYCLIC
     Route: 042
     Dates: start: 20081111
  3. LENALIDOMIDE [Suspect]
     Indication: MULTIPLE MYELOMA
     Dosage: 20 MG, CYCLIC
     Route: 048
  4. DEXAMETHASONE [Suspect]
     Indication: MULTIPLE MYELOMA
     Dosage: 20 MG, CYCLIC
     Route: 048
  5. ADVIL LIQUI-GELS [Concomitant]
  6. MOMETASONE [Concomitant]
  7. HYDROCODONE [Concomitant]
  8. MULTI-VITAMINS [Concomitant]
  9. DOXIL [Suspect]
     Indication: MULTIPLE MYELOMA
     Dosage: 30 MG/M2, CYCLIC
     Route: 042
  10. DARVOCET [Concomitant]
  11. TYLENOL (CAPLET) [Concomitant]
  12. LOESTRIN 1.5/30 [Concomitant]
  13. ASPIRIN [Concomitant]
  14. CYCLOBENZAPRINE [Concomitant]
  15. ZITHROMAX [Concomitant]
  16. OXYCODONE [Concomitant]

REACTIONS (1)
  - MALIGNANT MELANOMA [None]
